FAERS Safety Report 6503347-8 (Version None)
Quarter: 2009Q4

REPORT INFORMATION
  Report Type: 
  Country: None (occurrence: None)
  Receive Date: 20091217
  Receipt Date: 20091211
  Transmission Date: 20100525
  Serious: Yes (Other)
  Sender: FDA-Public Use
  Company Number: PT-ASTRAZENECA-2009SE15806

PATIENT
  Sex: Female

DRUGS (2)
  1. CRESTOR [Suspect]
     Route: 048
  2. DEBRIDAT 200 [Concomitant]
     Indication: IRRITABLE BOWEL SYNDROME
     Dosage: ONE OR TWO PILLS / DAY
     Dates: start: 20080201

REACTIONS (2)
  - ALOPECIA [None]
  - SOMNOLENCE [None]
